FAERS Safety Report 5022610-3 (Version None)
Quarter: 2006Q2

REPORT INFORMATION
  Report Type: 
  Country: None (occurrence: None)
  Receive Date: 20060605
  Receipt Date: 20060616
  Transmission Date: 20061013
  Serious: Yes (Life-Threatening, Other)
  Sender: FDA-Public Use
  Company Number: JP200604003079

PATIENT
  Age: 86 Year
  Sex: Male
  Weight: 55.2 kg

DRUGS (6)
  1. ZYPREXA [Suspect]
     Indication: DELIRIUM
     Dosage: 1.5 MG, UNK, ORAL
     Route: 048
     Dates: start: 20060221, end: 20060325
  2. DEPAS (ETIZOLAM) [Concomitant]
  3. METLIGINE (MIDODRINE HYDROCHLORIDE) [Concomitant]
  4. CALONAL (PARACETAMOL) [Concomitant]
  5. CORTRIL [Concomitant]
  6. MAGNESIUM OXIDE (MAGNESIUM OXIDE) [Concomitant]

REACTIONS (5)
  - CONVULSION [None]
  - DEPRESSED LEVEL OF CONSCIOUSNESS [None]
  - HYPOGLYCAEMIA [None]
  - LOCALISED OEDEMA [None]
  - OEDEMA PERIPHERAL [None]
